FAERS Safety Report 6345510-5 (Version None)
Quarter: 2009Q3

REPORT INFORMATION
  Report Type: 
  Country: None (occurrence: None)
  Receive Date: 20090909
  Receipt Date: 20090907
  Transmission Date: 20100115
  Serious: Yes (Hospitalization)
  Sender: FDA-Public Use
  Company Number: AT-BRISTOL-MYERS SQUIBB COMPANY-14708788

PATIENT
  Age: 70 Year
  Sex: Female

DRUGS (7)
  1. ORENCIA [Suspect]
     Indication: POLYARTHRITIS
     Dosage: ALSO GIVEN ON 06APR,20APR,18MAY,15JUN09 LOT #:8L45347,9848937,
     Route: 042
     Dates: start: 20090323
  2. HYDAL [Suspect]
  3. DURAGESIC-100 [Suspect]
  4. PASPERTIN [Suspect]
  5. ARAVA [Suspect]
  6. PREDNISOLONE [Suspect]
  7. BONIVA [Suspect]
     Dosage: 1 DF=3 MG/ML

REACTIONS (1)
  - MYOCARDIAL INFARCTION [None]
